FAERS Safety Report 7328937-4 (Version None)
Quarter: 2011Q1

REPORT INFORMATION
  Report Type: 
  Country: None (occurrence: None)
  Receive Date: 20110225
  Receipt Date: 20110225
  Transmission Date: 20110831
  Serious: Yes (Death)
  Sender: FDA-Public Use
  Company Number: None

PATIENT
  Age: 74 Year
  Sex: Male
  Weight: 121 kg

DRUGS (1)
  1. AMIODARONE HCL [Suspect]
     Indication: ATRIAL FIBRILLATION
     Dosage: 400MG BID PO
     Route: 048
     Dates: start: 20110209, end: 20110213

REACTIONS (7)
  - ALANINE AMINOTRANSFERASE INCREASED [None]
  - HEPATIC ENZYME INCREASED [None]
  - HYPOTENSION [None]
  - SHOCK [None]
  - ASTHENIA [None]
  - FATIGUE [None]
  - ASPARTATE AMINOTRANSFERASE INCREASED [None]
